FAERS Safety Report 4541387-9 (Version None)
Quarter: 2004Q4

REPORT INFORMATION
  Report Type: 
  Country: None (occurrence: None)
  Receive Date: 20041229
  Receipt Date: 20041222
  Transmission Date: 20050328
  Serious: Yes (Hospitalization, Disabling)
  Sender: FDA-Public Use
  Company Number: SE-MERCK-0412SWE00039

PATIENT
  Age: 81 Year
  Sex: Female

DRUGS (1)
  1. VIOXX [Suspect]
     Indication: OSTEOARTHRITIS
     Route: 048
     Dates: start: 20000622, end: 20040720

REACTIONS (3)
  - BLOOD CHOLESTEROL INCREASED [None]
  - CEREBRAL INFARCTION [None]
  - MUSCLE SPASTICITY [None]
